FAERS Safety Report 9900396 (Version 1)
Quarter: 2014Q1

REPORT INFORMATION
  Report Type: Other
  Country: DE (occurrence: DE)
  Receive Date: 20140217
  Receipt Date: 20140217
  Transmission Date: 20141002
  Serious: Yes (Other)
  Sender: FDA-Public Use
  Company Number: DE-SUN PHARMACEUTICAL INDUSTRIES LTD-2014SUN00296

PATIENT
  Age: 52 Year
  Sex: Male
  Weight: 100 kg

DRUGS (2)
  1. GEMCITABINE SUN 200 MG PULVER ZUR HERSTELLUNG EINER INFUSIONSL?SUNG [Suspect]
     Indication: SARCOMA METASTATIC
     Dosage: UNK
     Route: 042
     Dates: start: 20140122
  2. DOCETAXEL [Suspect]
     Indication: SARCOMA METASTATIC
     Route: 042

REACTIONS (2)
  - Visual impairment [Recovered/Resolved with Sequelae]
  - Venous occlusion [Recovered/Resolved with Sequelae]
